FAERS Safety Report 7927082-4 (Version None)
Quarter: 2011Q4

REPORT INFORMATION
  Report Type: 
  Country: None (occurrence: None)
  Receive Date: 20111116
  Receipt Date: 20111102
  Transmission Date: 20120403
  Serious: Yes (Other)
  Sender: FDA-Public Use
  Company Number: 2011MA016129

PATIENT
  Age: 50 Year
  Sex: Female

DRUGS (3)
  1. LOSARTAN POTASSIUM [Suspect]
     Indication: HYPERTENSION
     Dosage: 50 MG;QD;PO
     Route: 048
     Dates: start: 20110213, end: 20110923
  2. ACETAMINOPHEN AND CODEINE PHOSPHATE [Concomitant]
  3. PREV MEDS [Concomitant]

REACTIONS (2)
  - HEADACHE [None]
  - DEMYELINATION [None]
